FAERS Safety Report 21287726 (Version 1)
Quarter: 2022Q3

REPORT INFORMATION
  Report Type: Spontaneous
  Country: US (occurrence: US)
  Receive Date: 20220902
  Receipt Date: 20220902
  Transmission Date: 20221026
  Serious: Yes (Hospitalization, Other)
  Sender: FDA-Public Use
  Company Number: US-FreseniusKabi-FK202212032

PATIENT
  Age: 63 Year
  Sex: Female

DRUGS (20)
  1. DEXAMETHASONE [Suspect]
     Active Substance: DEXAMETHASONE
     Indication: Invasive ductal breast carcinoma
     Route: 042
  2. LIDOCAINE [Suspect]
     Active Substance: LIDOCAINE
     Indication: Neuralgia
     Route: 040
  3. LIDOCAINE [Suspect]
     Active Substance: LIDOCAINE
     Dosage: 1 MG/KG/HR
     Route: 042
  4. LIDOCAINE [Suspect]
     Active Substance: LIDOCAINE
     Dosage: WAS TITRATED UP TO 1.5 MG/KG/HR
     Route: 042
  5. CARBOPLATIN [Suspect]
     Active Substance: CARBOPLATIN
     Indication: Invasive ductal breast carcinoma
  6. GEMCITABINE [Suspect]
     Active Substance: GEMCITABINE
     Indication: Invasive ductal breast carcinoma
  7. DEXMEDETOMIDINE [Suspect]
     Active Substance: DEXMEDETOMIDINE
     Indication: Invasive ductal breast carcinoma
     Dosage: 0.1 MG/KG/HR, THEN INCREASED TO 0.2 MG/KG/HR THEN TO 0.4 MG/KG/HR AND FINALLY TO 0.5 MG/KG/HR
  8. HYDROMORPHONE [Suspect]
     Active Substance: HYDROMORPHONE
     Indication: Invasive ductal breast carcinoma
     Route: 042
  9. HYDROMORPHONE [Suspect]
     Active Substance: HYDROMORPHONE
     Dosage: 0.5 MG; 10 MIN LOCKOUT
  10. HYDROMORPHONE [Suspect]
     Active Substance: HYDROMORPHONE
     Dosage: 0.8 MG/HR
  11. HYDROMORPHONE [Suspect]
     Active Substance: HYDROMORPHONE
     Dosage: 0.6 MG/HR CONTINUOUS INFUSION WITH 1 MG IV AVAILABLE EVERY 1 HOUR AS NEEDED
     Route: 042
  12. LORAZEPAM [Concomitant]
     Active Substance: LORAZEPAM
     Indication: Product used for unknown indication
     Dosage: AS NEEDED
     Route: 048
  13. METHADONE [Concomitant]
     Active Substance: METHADONE HYDROCHLORIDE
     Indication: Analgesic therapy
  14. GABAPENTIN [Concomitant]
     Active Substance: GABAPENTIN
     Indication: Analgesic therapy
  15. OXYCODONE [Concomitant]
     Active Substance: OXYCODONE
     Indication: Analgesic therapy
     Dosage: EVERY 4 HOURS AS NEEDED (RECEIVED 5 TIMES A DAY ON AVERAGE).
  16. LEXAPRO [Concomitant]
     Active Substance: ESCITALOPRAM OXALATE
     Indication: Anxiety
  17. CHLORPROMAZINE [Concomitant]
     Active Substance: CHLORPROMAZINE
     Indication: Delirium
     Route: 042
  18. CHLORPROMAZINE [Concomitant]
     Active Substance: CHLORPROMAZINE
     Route: 042
  19. CHLORPROMAZINE [Concomitant]
     Active Substance: CHLORPROMAZINE
     Dosage: AS NEEDED
  20. TRAZODONE [Concomitant]
     Active Substance: TRAZODONE HYDROCHLORIDE
     Indication: Insomnia

REACTIONS (2)
  - Delirium [Not Recovered/Not Resolved]
  - Drug ineffective [Unknown]
